FAERS Safety Report 7682725-8 (Version None)
Quarter: 2011Q3

REPORT INFORMATION
  Report Type: 
  Country: None (occurrence: None)
  Receive Date: 20110810
  Receipt Date: 20110801
  Transmission Date: 20111222
  Serious: Yes (Hospitalization, Other)
  Sender: FDA-Public Use
  Company Number: 2011SP035949

PATIENT
  Age: 74 Year
  Sex: Male
  Weight: 67 kg

DRUGS (9)
  1. INTERFERON [Suspect]
     Indication: HEPATITIS C
     Dosage: 6 MIU;QD;INDRP; 3 MIU;QD;INDRP; 6 MIU; TIW;INDRP
     Route: 041
     Dates: start: 20100819, end: 20100904
  2. INTERFERON [Suspect]
     Indication: HEPATITIS C
     Dosage: 6 MIU;QD;INDRP; 3 MIU;QD;INDRP; 6 MIU; TIW;INDRP
     Route: 041
     Dates: start: 20100714, end: 20100723
  3. INTERFERON [Suspect]
     Indication: HEPATITIS C
     Dosage: 6 MIU;QD;INDRP; 3 MIU;QD;INDRP; 6 MIU; TIW;INDRP
     Route: 041
     Dates: start: 20100729, end: 20100730
  4. INTERFERON [Suspect]
     Indication: HEPATITIS C
     Dosage: 6 MIU;QD;INDRP; 3 MIU;QD;INDRP; 6 MIU; TIW;INDRP
     Route: 041
     Dates: start: 20100907, end: 20101229
  5. INTERFERON [Suspect]
     Indication: HEPATITIS C
     Dosage: 6 MIU;QD;INDRP; 3 MIU;QD;INDRP; 6 MIU; TIW;INDRP
     Route: 041
     Dates: start: 20100724, end: 20100728
  6. REBETOL [Suspect]
     Indication: HEPATITIS C
     Dosage: 800 MG;QD;PO
     Route: 048
     Dates: start: 20100714, end: 20100730
  7. REBETOL [Suspect]
     Indication: HEPATITIS C
     Dosage: 800 MG;QD;PO
     Route: 048
     Dates: start: 20100819, end: 20101229
  8. MEROPENEM [Concomitant]
  9. ACETAMINOPHEN [Concomitant]

REACTIONS (2)
  - BACTERAEMIA [None]
  - NEUTROPHIL COUNT DECREASED [None]
